FAERS Safety Report 8345458 (Version 4)
Quarter: 2012Q4

REPORT INFORMATION
  Report Type: 
  Country: US (occurrence: US)
  Receive Date: 20120120
  Receipt Date: 20121019
  Transmission Date: 20130627
  Serious: Yes (Life-Threatening, Hospitalization)
  Sender: FDA-Public Use
  Company Number: US-BRISTOL-MYERS SQUIBB COMPANY-16168205

PATIENT
  Age: 68 Year
  Sex: Male

DRUGS (2)
  1. YERVOY [Suspect]
     Indication: METASTATIC MALIGNANT MELANOMA
     Dosage: Received 2-3 doses
     Route: 042
     Dates: start: 20110825
  2. PREDNISONE [Concomitant]
     Route: 048
     Dates: start: 20110908

REACTIONS (2)
  - Enterocolitis [Not Recovered/Not Resolved]
  - Large intestine perforation [Recovered/Resolved]
